FAERS Safety Report 6324483-5 (Version None)
Quarter: 2009Q3

REPORT INFORMATION
  Report Type: 
  Country: None (occurrence: None)
  Receive Date: 20090824
  Receipt Date: 20090520
  Transmission Date: 20100115
  Serious: No
  Sender: FDA-Public Use
  Company Number: US-ABBOTT-09P-163-0572848-00

PATIENT
  Sex: Male
  Weight: 92.162 kg

DRUGS (14)
  1. NIASPAN [Suspect]
     Indication: BLOOD CHOLESTEROL INCREASED
     Dates: start: 20071101, end: 20090421
  2. NIASPAN [Suspect]
     Dates: start: 20090422
  3. SIMVASTATIN [Concomitant]
     Indication: BLOOD CHOLESTEROL INCREASED
     Dates: start: 20081001
  4. BENADRYL [Concomitant]
     Indication: FLUSHING
     Dates: start: 20071101
  5. BENADRYL [Concomitant]
     Indication: PROPHYLAXIS
  6. QUINAPRIL [Concomitant]
     Indication: HYPERTENSION
  7. NEXIUM [Concomitant]
     Indication: GASTROOESOPHAGEAL REFLUX DISEASE
  8. METOPROLOL [Concomitant]
     Indication: CORONARY ARTERY OCCLUSION
  9. PLAVIX [Concomitant]
     Indication: CORONARY ARTERY OCCLUSION
  10. ASCORBIC ACID [Concomitant]
     Indication: DRUG USE FOR UNKNOWN INDICATION
  11. CALCIUM [Concomitant]
     Indication: DRUG USE FOR UNKNOWN INDICATION
  12. FISH OIL [Concomitant]
     Indication: DRUG USE FOR UNKNOWN INDICATION
  13. MULTI-VITAMIN [Concomitant]
     Indication: DRUG USE FOR UNKNOWN INDICATION
  14. ASPIRIN [Concomitant]
     Indication: CARDIOVASCULAR EVENT PROPHYLAXIS

REACTIONS (3)
  - FEELING HOT [None]
  - FLUSHING [None]
  - PARAESTHESIA [None]
